FAERS Safety Report 7344546-5 (Version None)
Quarter: 2011Q1

REPORT INFORMATION
  Report Type: 
  Country: None (occurrence: None)
  Receive Date: 20110308
  Receipt Date: 20110308
  Transmission Date: 20110831
  Serious: Yes (Other)
  Sender: FDA-Public Use
  Company Number: None

PATIENT
  Sex: Female
  Weight: 58.9676 kg

DRUGS (1)
  1. METHADONE HCL [Suspect]
     Indication: PAIN
     Dosage: 3 TABS EVERY 6 HOURS PO
     Route: 048
     Dates: start: 20050520, end: 20110306

REACTIONS (2)
  - METABOLIC DISORDER [None]
  - WEIGHT INCREASED [None]
